FAERS Safety Report 18003483 (Version 2)
Quarter: 2021Q3

REPORT INFORMATION
  Report Type: Spontaneous
  Country: US (occurrence: US)
  Receive Date: 20200709
  Receipt Date: 20210709
  Transmission Date: 20211014
  Serious: No
  Sender: FDA-Public Use
  Company Number: US-ASTELLAS-2020US004906

PATIENT
  Age: 91 Year
  Sex: Female

DRUGS (1)
  1. MYRBETRIQ [Suspect]
     Active Substance: MIRABEGRON
     Indication: HYPERTONIC BLADDER
     Route: 065

REACTIONS (6)
  - Therapeutic product effect decreased [Unknown]
  - Tooth discolouration [Unknown]
  - Teeth brittle [Unknown]
  - Hearing disability [Unknown]
  - Dry mouth [Unknown]
  - Blood pressure increased [Unknown]
